FAERS Safety Report 4318065-4 (Version None)
Quarter: 2004Q1

REPORT INFORMATION
  Report Type: 
  Country: None (occurrence: None)
  Receive Date: 20040317
  Receipt Date: 20040220
  Transmission Date: 20041129
  Serious: Yes (Death, Hospitalization)
  Sender: FDA-Public Use
  Company Number: JP-BRISTOL-MYERS SQUIBB COMPANY-12513776

PATIENT
  Age: 53 Year
  Sex: Female

DRUGS (11)
  1. VEPESID [Suspect]
     Indication: CERVIX CARCINOMA
     Dosage: DOSING FOR 3 WKS, W/ 1 WK OFF
     Route: 048
     Dates: start: 20031117, end: 20040201
  2. MORPHINE [Concomitant]
     Indication: PAIN
     Route: 048
     Dates: start: 20040115, end: 20040118
  3. MS CONTIN [Concomitant]
     Indication: PAIN
     Dosage: INCREASED TO 40 MG UNTIL 26-JAN, + THEN TO 60 MG UNTIL 02-FEB
     Route: 048
     Dates: start: 20040119, end: 20040121
  4. FENTANYL [Concomitant]
     Indication: PAIN
     Route: 062
     Dates: start: 20040127, end: 20040129
  5. PREDONINE [Concomitant]
     Dosage: REDUCED FROM 10 MG (17NOV03 - 16JAN04)
     Route: 048
     Dates: start: 20040117, end: 20040202
  6. FOSAMAX [Concomitant]
     Route: 048
     Dates: start: 20031006, end: 20040201
  7. GASTER D [Concomitant]
     Route: 048
     Dates: start: 20031006, end: 20040201
  8. DIFLUCAN [Concomitant]
     Route: 048
     Dates: start: 20031006, end: 20040201
  9. LOXONIN [Concomitant]
     Route: 048
     Dates: start: 20031110, end: 20040201
  10. MUCOSTA [Concomitant]
     Route: 048
     Dates: start: 20031117, end: 20040201
  11. ALESION [Concomitant]
     Route: 048
     Dates: start: 20040126, end: 20040201

REACTIONS (2)
  - CANCER PAIN [None]
  - SEPTIC SHOCK [None]
